FAERS Safety Report 5325926-6 (Version None)
Quarter: 2007Q2

REPORT INFORMATION
  Report Type: 
  Country: None (occurrence: None)
  Receive Date: 20070516
  Receipt Date: 20070510
  Transmission Date: 20071010
  Serious: Yes (Other)
  Sender: FDA-Public Use
  Company Number: PHNU2006DE03159

PATIENT
  Age: 61 Year
  Sex: Female

DRUGS (1)
  1. ZOMETA [Suspect]
     Indication: PLASMACYTOMA
     Dosage: 4 MG, QMO
     Route: 042
     Dates: start: 20020701, end: 20050901

REACTIONS (26)
  - ACTINOMYCOSIS [None]
  - BIOPSY [None]
  - BONE DISORDER [None]
  - COMPUTERISED TOMOGRAM ABNORMAL [None]
  - FISTULA [None]
  - HISTOLOGY ABNORMAL [None]
  - HYPERBARIC OXYGEN THERAPY [None]
  - HYPERPLASIA [None]
  - IMPAIRED HEALING [None]
  - INFLAMMATION [None]
  - JAW DISORDER [None]
  - LOOSE TOOTH [None]
  - LYMPHADENOPATHY [None]
  - MOUTH ULCERATION [None]
  - NUCLEAR MAGNETIC RESONANCE IMAGING ABNORMAL [None]
  - OEDEMA MOUTH [None]
  - ORAL MUCOSA ATROPHY [None]
  - OSTEOLYSIS [None]
  - OSTEONECROSIS [None]
  - OSTEOSCLEROSIS [None]
  - PERIODONTITIS [None]
  - PRIMARY SEQUESTRUM [None]
  - STEM CELL TRANSPLANT [None]
  - TOOTH EXTRACTION [None]
  - TOOTH RESORPTION [None]
  - X-RAY ABNORMAL [None]
